FAERS Safety Report 7644755-1 (Version None)
Quarter: 2011Q3

REPORT INFORMATION
  Report Type: 
  Country: None (occurrence: None)
  Receive Date: 20110729
  Receipt Date: 20110725
  Transmission Date: 20111222
  Serious: Yes (Hospitalization, Other)
  Sender: FDA-Public Use
  Company Number: SE-ABBOTT-11P-150-0734659-00

PATIENT
  Sex: Male

DRUGS (1)
  1. HUMIRA [Suspect]
     Indication: CROHN'S DISEASE
     Route: 058
     Dates: start: 20101027, end: 20110613

REACTIONS (4)
  - SYSTEMIC LUPUS ERYTHEMATOSUS [None]
  - LUPUS-LIKE SYNDROME [None]
  - ANTINUCLEAR ANTIBODY INCREASED [None]
  - PYREXIA [None]
